FAERS Safety Report 19566919 (Version 1)
Quarter: 2021Q3

REPORT INFORMATION
  Report Type: Other
  Country: US (occurrence: US)
  Receive Date: 20210716
  Receipt Date: 20210716
  Transmission Date: 20211014
  Serious: Yes (Hospitalization, Other)
  Sender: FDA-Public Use
  Company Number: US-ROCHE-2869372

PATIENT
  Age: 73 Year
  Sex: Male

DRUGS (1)
  1. RITUXIMAB. [Suspect]
     Active Substance: RITUXIMAB
     Indication: IMMUNE THROMBOCYTOPENIA
     Route: 042

REACTIONS (5)
  - Urinary tract infection [Unknown]
  - JC virus infection [Unknown]
  - Progressive multifocal leukoencephalopathy [Unknown]
  - Influenza [Unknown]
  - Encephalitis brain stem [Unknown]
